FAERS Safety Report 18340398 (Version 1)
Quarter: 2020Q4

REPORT INFORMATION
  Report Type: Spontaneous
  Country: US (occurrence: US)
  Receive Date: 20201002
  Receipt Date: 20201002
  Transmission Date: 20210113
  Serious: Yes (Other)
  Sender: FDA-Public Use
  Company Number: US-SUNOVION-2020SUN002846

PATIENT
  Sex: Male

DRUGS (1)
  1. LATUDA [Suspect]
     Active Substance: LURASIDONE HYDROCHLORIDE
     Dosage: 60 MG, QD
     Route: 048

REACTIONS (6)
  - Anxiety [Unknown]
  - Energy increased [Unknown]
  - Emotional distress [Unknown]
  - Drug abuse [Unknown]
  - Overweight [Unknown]
  - Therapy interrupted [Unknown]
